FAERS Safety Report 12976061 (Version 2)
Quarter: 2017Q1

REPORT INFORMATION
  Report Type: Report from Study
  Country: None (occurrence: US)
  Receive Date: 20161126
  Receipt Date: 20170131
  Transmission Date: 20170428
  Serious: Yes (Hospitalization, Other)
  Sender: FDA-Public Use
  Company Number: US-ABBVIE-16K-163-1742539-00

PATIENT
  Age: 69 Year
  Sex: Female

DRUGS (2)
  1. HUMIRA [Suspect]
     Active Substance: ADALIMUMAB
     Route: 058
     Dates: start: 2015
  2. HUMIRA [Suspect]
     Active Substance: ADALIMUMAB
     Indication: CROHN^S DISEASE
     Route: 058
     Dates: start: 2011, end: 2013

REACTIONS (10)
  - Coronary artery occlusion [Unknown]
  - Pain in jaw [Recovered/Resolved]
  - Feeling abnormal [Unknown]
  - Tuberculin test positive [Recovered/Resolved]
  - Crohn^s disease [Recovered/Resolved]
  - Arteriosclerosis [Unknown]
  - Crohn^s disease [Unknown]
  - Myocardial infarction [Recovered/Resolved]
  - Coronary artery disease [Unknown]
  - Crohn^s disease [Recovering/Resolving]

NARRATIVE: CASE EVENT DATE: 2013
